FAERS Safety Report 4565216-2 (Version None)
Quarter: 2005Q1

REPORT INFORMATION
  Report Type: 
  Country: None (occurrence: None)
  Receive Date: 20050127
  Receipt Date: 20050127
  Transmission Date: 20050727
  Serious: Yes (Other)
  Sender: FDA-Public Use
  Company Number: None

PATIENT
  Age: 39 Year
  Sex: Female

DRUGS (2)
  1. NEOMYCIN + POLYMYXIN B SULFATES + DEXAMETHASONE [Suspect]
     Indication: CONJUNCTIVITIS
     Dosage: 1-2 DROPS IN BOTH EYES 3X/DAY FOR 5-7 DAY
     Route: 047
     Dates: start: 20050105
  2. AMOXICILLIN [Concomitant]

REACTIONS (7)
  - EYE INFECTION VIRAL [None]
  - EYE PAIN [None]
  - EYE SWELLING [None]
  - OCULAR HYPERAEMIA [None]
  - OPTIC NERVE INJURY [None]
  - PHARMACEUTICAL PRODUCT COMPLAINT [None]
  - PRURITUS [None]
